FAERS Safety Report 16227579 (Version 1)
Quarter: 2019Q2

REPORT INFORMATION
  Report Type: Spontaneous
  Country: US (occurrence: US)
  Receive Date: 20190318
  Receipt Date: 20190318
  Transmission Date: 20190711
  Serious: Yes (Hospitalization)
  Sender: FDA-Public Use
  Company Number: None

PATIENT
  Age: 79 Year
  Sex: Male
  Weight: 98.7 kg

DRUGS (12)
  1. LOSARTAIN [Concomitant]
  2. NITROGLYCERIN. [Concomitant]
     Active Substance: NITROGLYCERIN
  3. MAGNESIUM [Concomitant]
     Active Substance: MAGNESIUM
  4. ZINC. [Concomitant]
     Active Substance: ZINC
  5. VICODIN [Concomitant]
     Active Substance: ACETAMINOPHEN\HYDROCODONE BITARTRATE
  6. METOPROLOL. [Concomitant]
     Active Substance: METOPROLOL
  7. DOCUSATE [Concomitant]
     Active Substance: DOCUSATE
  8. COENZYME Q 10 [Concomitant]
  9. SPIRONOLACTONE. [Concomitant]
     Active Substance: SPIRONOLACTONE
  10. OMEGA 3 [Concomitant]
     Active Substance: OMEGA-3 FATTY ACIDS
  11. ENZALUTAMIDE [Suspect]
     Active Substance: ENZALUTAMIDE
     Indication: PROSTATE CANCER
     Route: 048
     Dates: start: 20170314
  12. MELATONIN [Concomitant]
     Active Substance: MELATONIN

REACTIONS (2)
  - Abdominal pain lower [None]
  - Urinary tract infection [None]
